FAERS Safety Report 5775154-5 (Version None)
Quarter: 2008Q2

REPORT INFORMATION
  Report Type: 
  Country: None (occurrence: None)
  Receive Date: 20080616
  Receipt Date: 20080616
  Transmission Date: 20081010
  Serious: Yes (Other)
  Sender: FDA-Public Use
  Company Number: None

PATIENT
  Age: 68 Year
  Sex: Female
  Weight: 74.8435 kg

DRUGS (1)
  1. RECLAST [Suspect]
     Indication: OSTEOARTHRITIS
     Dosage: 5 MG ONCE  IV DRIP
     Route: 041
     Dates: start: 20080610, end: 20080610

REACTIONS (4)
  - INADEQUATE ANALGESIA [None]
  - MONOPLEGIA [None]
  - MUSCULOSKELETAL PAIN [None]
  - PAIN IN EXTREMITY [None]
